FAERS Safety Report 15132475 (Version 1)
Quarter: 2018Q3

REPORT INFORMATION
  Report Type: Report from Study
  Country: FR (occurrence: FR)
  Receive Date: 20180712
  Receipt Date: 20180712
  Transmission Date: 20181010
  Serious: Yes (Other)
  Sender: FDA-Public Use
  Company Number: FR-TEVA-2018-FR-921980

PATIENT
  Age: 16 Year
  Sex: Female

DRUGS (4)
  1. TRETINOIN. [Suspect]
     Active Substance: TRETINOIN
     Indication: THROMBOTIC MICROANGIOPATHY
  2. PREDNISOLONE. [Suspect]
     Active Substance: PREDNISOLONE
     Indication: CASTLEMAN^S DISEASE
     Dosage: FURTHER, REDUCED TO 0.25 MG/KG/DAY
     Route: 048
  3. PREDNISOLONE. [Suspect]
     Active Substance: PREDNISOLONE
     Indication: THROMBOTIC MICROANGIOPATHY
     Route: 048
  4. TRETINOIN. [Suspect]
     Active Substance: TRETINOIN
     Indication: CASTLEMAN^S DISEASE
     Route: 065

REACTIONS (4)
  - Intracranial pressure increased [Unknown]
  - Pulmonary embolism [Unknown]
  - Device related infection [Unknown]
  - Hyperkalaemia [Recovered/Resolved]
